FAERS Safety Report 6771877-X (Version None)
Quarter: 2010Q2

REPORT INFORMATION
  Report Type: 
  Country: None (occurrence: None)
  Receive Date: 20100616
  Receipt Date: 20091015
  Transmission Date: 20101027
  Serious: No
  Sender: FDA-Public Use
  Company Number: US-ASTRAZENECA-2009SE20395

PATIENT
  Sex: Male

DRUGS (8)
  1. ENTOCORT EC [Suspect]
     Dosage: 2 CAPS
     Route: 048
  2. ZOCOR [Concomitant]
  3. MICARDIS HCT [Concomitant]
  4. ROCALTROL [Concomitant]
  5. POTASSIUM [Concomitant]
  6. REMICADE [Concomitant]
  7. CIPRO [Concomitant]
  8. ATENOLOL [Concomitant]

REACTIONS (3)
  - BLOOD CHOLESTEROL INCREASED [None]
  - BLOOD TRIGLYCERIDES INCREASED [None]
  - LOW DENSITY LIPOPROTEIN INCREASED [None]
